FAERS Safety Report 5295929-9 (Version None)
Quarter: 2007Q2

REPORT INFORMATION
  Report Type: 
  Country: None (occurrence: None)
  Receive Date: 20070413
  Receipt Date: 20070402
  Transmission Date: 20071010
  Serious: Yes (Other)
  Sender: FDA-Public Use
  Company Number: PHEH2007US03848

PATIENT
  Sex: Male

DRUGS (7)
  1. DIOVAN HCT [Suspect]
     Indication: HYPERTENSION
     Dosage: 160MG VAL/12.5MG HCT, QD
     Dates: start: 20061001
  2. ASACOL [Concomitant]
     Dosage: UNK, UNK
  3. PREDNISONE TAB [Concomitant]
     Dosage: UNK, UNK
  4. LIBRAX [Concomitant]
     Dosage: UNK, UNK
  5. FLOMAX [Concomitant]
     Dosage: UNK, UNK
  6. FOSAMAX [Concomitant]
     Dosage: UNK, UNK
  7. ADVAIR DISKUS 100/50 [Concomitant]
     Dosage: UNK, UNK

REACTIONS (2)
  - CONDITION AGGRAVATED [None]
  - RECTAL HAEMORRHAGE [None]
